FAERS Safety Report 7161948-0 (Version None)
Quarter: 2010Q4

REPORT INFORMATION
  Report Type: 
  Country: None (occurrence: None)
  Receive Date: 20101215
  Receipt Date: 20100721
  Transmission Date: 20110411
  Serious: Yes (Death)
  Sender: FDA-Public Use
  Company Number: AU-PFIZER INC-2010082550

PATIENT
  Age: 37 Year
  Sex: Male

DRUGS (8)
  1. LYRICA [Suspect]
     Indication: NEURALGIA
     Dosage: UNK
  2. DIAZEPAM [Concomitant]
     Indication: MUSCLE SPASMS
     Dosage: 5 MG, 3X/DAY
  3. BACLOFEN [Concomitant]
     Indication: MUSCLE SPASMS
     Dosage: 50 MG, 3X/DAY
  4. DANTROLENE [Concomitant]
     Indication: MUSCLE SPASMS
     Dosage: 25 MG, 4X/DAY
  5. OXYBUTYNIN [Concomitant]
     Indication: HYPERTONIC BLADDER
     Dosage: 5 MG, 2X/DAY
  6. AMITRIPTYLINE [Concomitant]
     Indication: NEURALGIA
     Dosage: 100 MG, 1X/DAY
  7. OXYCONTIN [Concomitant]
     Indication: PAIN
     Dosage: 100 MG, 2X/DAY
  8. CARBAMAZEPINE [Concomitant]
     Indication: PAIN
     Dosage: 100 MG, X 5 DAILY

REACTIONS (1)
  - CEREBRAL HAEMORRHAGE [None]
